FAERS Safety Report 13913287 (Version 1)
Quarter: 2017Q3

REPORT INFORMATION
  Report Type: Spontaneous
  Country: US (occurrence: US)
  Receive Date: 20170828
  Receipt Date: 20170828
  Transmission Date: 20171127
  Serious: No
  Sender: FDA-Public Use
  Company Number: US-ROCHE-1131700

PATIENT
  Age: 17 Year
  Sex: Female

DRUGS (1)
  1. NUTROPIN [Suspect]
     Active Substance: SOMATROPIN
     Indication: TURNER^S SYNDROME
     Route: 058
     Dates: start: 19981105

REACTIONS (1)
  - Dermatitis [Unknown]

NARRATIVE: CASE EVENT DATE: 19990826
